FAERS Safety Report 4871183-4 (Version None)
Quarter: 2005Q4

REPORT INFORMATION
  Report Type: 
  Country: None (occurrence: None)
  Receive Date: 20051229
  Receipt Date: 20051221
  Transmission Date: 20060501
  Serious: Yes (Hospitalization)
  Sender: FDA-Public Use
  Company Number: 167-20785-05120419

PATIENT
  Age: 66 Year
  Sex: Female

DRUGS (9)
  1. THALIDOMIDE - PHARMION (THALIDOMIDE) (50 MILLIGRAM, CAPSULES) [Suspect]
     Indication: SMALL CELL LUNG CANCER STAGE UNSPECIFIED
     Dosage: 100 MG, QD, ORAL
     Route: 048
     Dates: start: 20050929, end: 20051220
  2. CARBOPLATIN [Suspect]
     Indication: SMALL CELL LUNG CANCER STAGE UNSPECIFIED
     Dates: start: 20050929, end: 20051220
  3. ETOPOSIDE [Suspect]
     Indication: SMALL CELL LUNG CANCER STAGE UNSPECIFIED
     Dates: start: 20050929, end: 20051220
  4. DEXAMETHASONE [Suspect]
     Indication: SMALL CELL LUNG CANCER STAGE UNSPECIFIED
     Dosage: SEE IMAGE
     Route: 048
     Dates: end: 20051219
  5. DEXAMETHASONE [Suspect]
     Indication: SMALL CELL LUNG CANCER STAGE UNSPECIFIED
     Dosage: SEE IMAGE
     Route: 048
     Dates: start: 20051220
  6. TEMAZEPAM [Concomitant]
  7. LANSOPRAZOLE (LANZOPRAZOLE) [Concomitant]
  8. METOCLOPRAMIDE [Concomitant]
  9. PROPRANOLOL [Concomitant]

REACTIONS (6)
  - APHASIA [None]
  - BLOOD ALKALINE PHOSPHATASE INCREASED [None]
  - BLOOD GLUCOSE INCREASED [None]
  - CONVULSION [None]
  - HEMIPARESIS [None]
  - LABORATORY TEST ABNORMAL [None]
